FAERS Safety Report 9438423 (Version 2)
Quarter: 2014Q1

REPORT INFORMATION
  Report Type: Spontaneous
  Country: US (occurrence: US)
  Receive Date: 20130802
  Receipt Date: 20140110
  Transmission Date: 20141002
  Serious: Yes (Hospitalization)
  Sender: FDA-Public Use
  Company Number: US-B.I. PHARMACEUTICALS,INC./RIDGEFIELD-2013-BI-23024BP

PATIENT
  Age: 81 Year
  Sex: Female
  Weight: 58.97 kg

DRUGS (12)
  1. PRADAXA [Suspect]
     Dosage: 300 MG
     Route: 048
     Dates: start: 20110614, end: 20120325
  2. TYLENOL PM [Concomitant]
  3. ALPHAGAN EYE DROPS [Concomitant]
  4. NEXIUM [Concomitant]
     Dosage: 40 MG
  5. VICOPROFEN [Concomitant]
  6. SYNTHROID [Concomitant]
     Dosage: 100 MCG
  7. DITROPAN [Concomitant]
     Dosage: 10 MG
     Route: 048
  8. MIRALAX [Concomitant]
     Dosage: 17 G
     Route: 048
  9. LYRICA [Concomitant]
     Route: 048
  10. ADVAIR [Concomitant]
     Dosage: 1 PUF
  11. ZOCOR [Concomitant]
     Dosage: 40 MG
  12. LUMIGAN EYE DROPS [Concomitant]

REACTIONS (2)
  - Gastrointestinal haemorrhage [Unknown]
  - Haemorrhagic anaemia [Unknown]
